FAERS Safety Report 4565923-1 (Version None)
Quarter: 2005Q1

REPORT INFORMATION
  Report Type: 
  Country: None (occurrence: None)
  Receive Date: 20050128
  Receipt Date: 20050117
  Transmission Date: 20050727
  Serious: Yes (Hospitalization, Other)
  Sender: FDA-Public Use
  Company Number: 211388

PATIENT
  Age: 58 Year
  Sex: Male
  Weight: 66 kg

DRUGS (7)
  1. MABTHERA (RITUXIMAB) CONC FOR SOLUTION FOR INFUSION [Suspect]
     Indication: MANTLE CELL LYMPHOMA
     Dosage: SEE IMAGE
     Route: 042
     Dates: start: 20040201, end: 20040401
  2. MABTHERA (RITUXIMAB) CONC FOR SOLUTION FOR INFUSION [Suspect]
     Indication: MANTLE CELL LYMPHOMA
     Dosage: SEE IMAGE
     Route: 042
     Dates: start: 20041215
  3. THALIDOMIDE (THALIDOMIDE) [Concomitant]
  4. BACTRIM FORTE (TRIMETHOPRIM) [Concomitant]
  5. ALLOPURINOL [Concomitant]
  6. ORACILLIN (PENICILLIN V) [Concomitant]
  7. VALACYCLOVIR HCL [Concomitant]

REACTIONS (6)
  - BONE MARROW DISORDER [None]
  - CONDITION AGGRAVATED [None]
  - DRUG INEFFECTIVE [None]
  - MANTLE CELL LYMPHOMA RECURRENT [None]
  - NEUTROPENIA [None]
  - THROMBOCYTOPENIA [None]
